FAERS Safety Report 9423159 (Version 2)
Quarter: 2013Q3

REPORT INFORMATION
  Report Type: Spontaneous
  Country: US (occurrence: US)
  Receive Date: 20130726
  Receipt Date: 20130731
  Transmission Date: 20140515
  Serious: Yes (Other)
  Sender: FDA-Public Use
  Company Number: US-BAYER-2013-089488

PATIENT
  Age: 40 Year
  Sex: Male
  Weight: 141 kg

DRUGS (3)
  1. ALEVE TABLET [Suspect]
     Dosage: 2 DF, ONCE
     Route: 048
     Dates: start: 20130721
  2. METFORMIN [Concomitant]
  3. MELOXICAM [Concomitant]

REACTIONS (5)
  - Swollen tongue [Not Recovered/Not Resolved]
  - Lip swelling [Not Recovered/Not Resolved]
  - Lip pain [None]
  - Lip disorder [Not Recovered/Not Resolved]
  - Lip disorder [None]
